FAERS Safety Report 20969352 (Version 1)
Quarter: 2022Q2

REPORT INFORMATION
  Report Type: Spontaneous
  Country: US (occurrence: US)
  Receive Date: 20220616
  Receipt Date: 20220616
  Transmission Date: 20220721
  Serious: No
  Sender: FDA-Public Use
  Company Number: US-SK LIFE SCIENCE, INC-SKPVG-2022-000359

PATIENT

DRUGS (15)
  1. XCOPRI [Suspect]
     Active Substance: CENOBAMATE
     Indication: Seizure
     Dosage: 200 MILLIGRAM, QD
     Route: 048
     Dates: end: 202111
  2. DILANTIN                           /00017401/ [Concomitant]
     Indication: Product used for unknown indication
     Dosage: 100MG TWO TABLETS AT BEDTIME
     Route: 065
  3. LIPITOR [Concomitant]
     Active Substance: ATORVASTATIN CALCIUM
     Indication: Product used for unknown indication
     Dosage: 20MG, ONE TABLET DAILY AT BEDTIME
     Route: 065
  4. TOPAMAX [Concomitant]
     Active Substance: TOPIRAMATE
     Indication: Product used for unknown indication
     Dosage: 200MG ONE TABLET, TWICE DAILY
     Route: 065
  5. SERTRALINE [Concomitant]
     Active Substance: SERTRALINE HYDROCHLORIDE
     Indication: Product used for unknown indication
     Dosage: 25MG ONCE DAILY IN THE MORNING
     Route: 065
  6. FAMOTIDINE [Concomitant]
     Active Substance: FAMOTIDINE
     Indication: Product used for unknown indication
     Dosage: ONCE DAILY
     Route: 065
  7. AMITRIPTYLINE [Concomitant]
     Active Substance: AMITRIPTYLINE
     Indication: Product used for unknown indication
     Dosage: 50MG ONE TABLET DAILY AT BEDTIME
     Route: 065
  8. STOOL SOFTENER (DOCUSATE) [Concomitant]
     Active Substance: DOCUSATE
     Indication: Product used for unknown indication
     Dosage: AT BEDTIME
     Route: 065
  9. ASPIRIN [Concomitant]
     Active Substance: ASPIRIN
     Indication: Product used for unknown indication
     Dosage: 81MG ONCE DAILY IN THE MORNING
     Route: 065
  10. BIOTIN [Concomitant]
     Active Substance: BIOTIN
     Indication: Product used for unknown indication
     Dosage: 500 MCG AT NIGHT
     Route: 065
  11. MELATONIN [Concomitant]
     Active Substance: MELATONIN
     Indication: Product used for unknown indication
     Dosage: 10MG AT NIGHT
     Route: 065
  12. LEVOTHYROXINE [Concomitant]
     Active Substance: LEVOTHYROXINE
     Indication: Product used for unknown indication
     Dosage: 25 MCG ONE DAILY
     Route: 065
  13. CALCIUM [Concomitant]
     Active Substance: CALCIUM
     Indication: Product used for unknown indication
     Dosage: 600MG ONCE DAILY
     Route: 065
  14. BANZEL [Concomitant]
     Active Substance: RUFINAMIDE
     Indication: Product used for unknown indication
     Dosage: 400MG ONE AND A HALF TABLETS IN THE MORNING AND TWO TABLETS AT NIGHT
     Route: 065
  15. DILANTIN                           /00017401/ [Concomitant]
     Indication: Product used for unknown indication
     Dosage: 50MG ONE AND A HALF TABLET AT BEDTIME
     Route: 065

REACTIONS (2)
  - Seizure [Recovering/Resolving]
  - Headache [Recovering/Resolving]
